FAERS Safety Report 9467352 (Version 1)
Quarter: 2013Q3

REPORT INFORMATION
  Report Type: Spontaneous
  Country: BR (occurrence: BR)
  Receive Date: 20130821
  Receipt Date: 20130821
  Transmission Date: 20140515
  Serious: Yes (Other)
  Sender: FDA-Public Use
  Company Number: BR-BRISTOL-MYERS SQUIBB COMPANY-19183748

PATIENT
  Age: 62 Year
  Sex: Male
  Weight: 60 kg

DRUGS (6)
  1. ONGLYZA TABS 5 MG [Suspect]
     Indication: TYPE 2 DIABETES MELLITUS
     Dosage: 1 TABLET
     Route: 048
     Dates: start: 2012
  2. METFORMIN HCL [Suspect]
  3. GLIMEPIRIDE [Suspect]
  4. LOSARTAN [Concomitant]
  5. PROPRANOLOL [Concomitant]
  6. ACYCLOVIR [Concomitant]

REACTIONS (3)
  - Non-Hodgkin^s lymphoma [Unknown]
  - Meningitis herpes [Unknown]
  - Hypoglycaemia [Unknown]
